FAERS Safety Report 7990159 (Version 2)
Quarter: 2013Q4

REPORT INFORMATION
  Report Type: Spontaneous
  Country: US (occurrence: None)
  Receive Date: 20110526
  Receipt Date: 20131008
  Transmission Date: 20140711
  Serious: Yes (Hospitalization)
  Sender: FDA-Public Use
  Company Number: CIP11000550

PATIENT
  Age: 63 Year
  Sex: Female
  Weight: 86.6 kg

DRUGS (21)
  1. ACTONEL [Suspect]
     Indication: OSTEOPOROSIS
     Dosage: 35 MG, 1/WEEK, ORAL
     Route: 048
     Dates: start: 20090202, end: 201004
  2. FOSAMAX [Suspect]
     Indication: OSTEOPOROSIS
     Dosage: 5 MG, DAILY, ORAL
     Route: 048
     Dates: start: 19980310, end: 1999
  3. ALENDRONATE [Suspect]
     Indication: OSTEOPOROSIS
     Dosage: 70 MG, 1/WEEK
     Dates: start: 20080602, end: 2009
  4. ADVAIR HFA [Concomitant]
  5. LEVOTHYROXINE SODIUM [Concomitant]
  6. TERCONAZOLE (TERCONAZOLE) [Concomitant]
  7. ZYRTEC [Concomitant]
  8. ALLEGRA /01314201/ (FEXOFENADINE) [Concomitant]
  9. NASACORT [Concomitant]
  10. VOLTAREN [Concomitant]
  11. TYLENOL /0002001/ (PARACETAMOL) [Concomitant]
  12. PROZAC [Concomitant]
  13. DOXYCYCLINE [Concomitant]
  14. KENALOG IN ORBASE (TRIAMCINOLONE ACETONIDE) [Concomitant]
  15. TAMIFLU [Concomitant]
  16. RESTASIS (CICLOSPORIN) [Concomitant]
  17. PREDNISONE [Concomitant]
  18. METRONIDAZOLE [Concomitant]
  19. ASPIRIN [Concomitant]
  20. PROAIR (FLUTICASONE PROPIONATE) [Concomitant]
  21. ZANTAC [Concomitant]

REACTIONS (25)
  - Femur fracture [None]
  - Fracture displacement [None]
  - Stress fracture [None]
  - Pain in extremity [None]
  - Bursitis [None]
  - Iliotibial band syndrome [None]
  - Gait disturbance [None]
  - Arthralgia [None]
  - Fall [None]
  - Abasia [None]
  - Oedema peripheral [None]
  - Contusion [None]
  - Nausea [None]
  - Anaemia postoperative [None]
  - Pyrexia [None]
  - Drug ineffective [None]
  - High turnover osteopathy [None]
  - Plasma cell myeloma [None]
  - Poor quality sleep [None]
  - Tenderness [None]
  - Ligament rupture [None]
  - Synovial cyst [None]
  - Chondrocalcinosis [None]
  - Meniscus injury [None]
  - Ecchymosis [None]
